FAERS Safety Report 10037728 (Version 1)
Quarter: 2014Q1

REPORT INFORMATION
  Report Type: Spontaneous
  Country: US (occurrence: US)
  Receive Date: 20140326
  Receipt Date: 20140326
  Transmission Date: 20141002
  Serious: No
  Sender: FDA-Public Use
  Company Number: US-PFIZER INC-2014081234

PATIENT
  Sex: Female

DRUGS (2)
  1. LYRICA [Suspect]
     Indication: BACK PAIN
     Dosage: UNK
  2. AMBIEN [Suspect]
     Indication: BACK PAIN
     Dosage: UNK

REACTIONS (4)
  - Hallucination [Unknown]
  - Emotional disorder [Unknown]
  - Feeling abnormal [Unknown]
  - Dizziness [Unknown]
